FAERS Safety Report 12075972 (Version 1)
Quarter: 2016Q1

REPORT INFORMATION
  Report Type: Report from Study
  Country: US (occurrence: US)
  Receive Date: 20160215
  Receipt Date: 20160215
  Transmission Date: 20160526
  Serious: Yes (Death, Hospitalization)
  Sender: FDA-Public Use
  Company Number: US-ROCHE-476894

PATIENT
  Age: 53 Year
  Sex: Male

DRUGS (5)
  1. LINEZOLID. [Concomitant]
     Active Substance: LINEZOLID
     Route: 048
  2. ERLOTINIB [Suspect]
     Active Substance: ERLOTINIB
     Indication: BILIARY NEOPLASM
     Dosage: DAYS 1 TO 28?LAST DOSE OF ERLOTINIB WAS RECEIVED ON 08/DEC/2006 AND 20/DEC/2006
     Route: 048
  3. VANCOMYCIN [Concomitant]
     Active Substance: VANCOMYCIN
     Route: 065
  4. CIPROFLOXACIN. [Concomitant]
     Active Substance: CIPROFLOXACIN
  5. BEVACIZUMAB [Suspect]
     Active Substance: BEVACIZUMAB
     Indication: BILIARY NEOPLASM
     Dosage: GIVEN OVER 30-90 MINUTES ON DAYS 1 AND 15 OF EVERY 28-DAY-CYCLE.?LAST DOSE OF BEVACIZUMAB RECEIVED O
     Route: 042

REACTIONS (5)
  - Death [Fatal]
  - Fatigue [Unknown]
  - Disease progression [Unknown]
  - Biliary tract infection [Unknown]
  - Abdominal pain [Unknown]

NARRATIVE: CASE EVENT DATE: 20061202
